FAERS Safety Report 19943737 (Version 1)
Quarter: 2021Q4

REPORT INFORMATION
  Report Type: Other
  Country: IN (occurrence: IN)
  Receive Date: 20211012
  Receipt Date: 20211012
  Transmission Date: 20220304
  Serious: Yes (Other)
  Sender: FDA-Public Use
  Company Number: IN-ROCHE-2930215

PATIENT

DRUGS (1)
  1. BEVACIZUMAB [Suspect]
     Active Substance: BEVACIZUMAB
     Indication: Neoplasm malignant
     Dosage: 5 MG/KG IN EVERY 2 WEEKS OR 7.5 MG/KG IN EVERY 3 WEEKS
     Route: 065

REACTIONS (9)
  - Arterial thrombosis [Unknown]
  - Venous thrombosis [Unknown]
  - Haemorrhage [Unknown]
  - Hypertension [Unknown]
  - Proteinuria [Unknown]
  - Cardiac failure congestive [Unknown]
  - Intestinal obstruction [Unknown]
  - Hypotension [Unknown]
  - Hypersensitivity [Unknown]
